FAERS Safety Report 25264499 (Version 5)
Quarter: 2025Q2

REPORT INFORMATION
  Report Type: Spontaneous
  Country: US (occurrence: US)
  Receive Date: 20250502
  Receipt Date: 20250602
  Transmission Date: 20250716
  Serious: Yes (Hospitalization)
  Sender: JOHNSON AND JOHNSON
  Company Number: US-JNJFOC-20250431854

PATIENT
  Age: 60 Year
  Sex: Female

DRUGS (3)
  1. INVEGA SUSTENNA [Suspect]
     Active Substance: PALIPERIDONE PALMITATE
     Indication: Mania
     Route: 030
  2. INVEGA SUSTENNA [Suspect]
     Active Substance: PALIPERIDONE PALMITATE
  3. INVEGA SUSTENNA [Suspect]
     Active Substance: PALIPERIDONE PALMITATE

REACTIONS (16)
  - Hospitalisation [Unknown]
  - Blood cholesterol increased [Unknown]
  - Oedema [Unknown]
  - Unevaluable event [Unknown]
  - Hypoglycaemia [Unknown]
  - Drug ineffective [Unknown]
  - Confusional state [Unknown]
  - Nervousness [Unknown]
  - Depression [Unknown]
  - Hyperglycaemia [Unknown]
  - Anxiety [Unknown]
  - Fatigue [Unknown]
  - Off label use [Unknown]
  - Brain fog [Unknown]
  - Sedation [Unknown]
  - Somnolence [Unknown]
